FAERS Safety Report 24353428 (Version 1)
Quarter: 2024Q3

REPORT INFORMATION
  Report Type: Report from Study
  Country: PE (occurrence: PE)
  Receive Date: 20240923
  Receipt Date: 20240923
  Transmission Date: 20241017
  Serious: No
  Sender: ROCHE
  Company Number: PE-ROCHE-3463783

PATIENT
  Age: 55 Year
  Sex: Female
  Weight: 48.0 kg

DRUGS (1)
  1. HERCEPTIN [Suspect]
     Active Substance: TRASTUZUMAB
     Indication: Breast cancer
     Route: 042
     Dates: start: 20231024

REACTIONS (3)
  - Asthenia [Unknown]
  - Fatigue [Unknown]
  - Epistaxis [Unknown]
